FAERS Safety Report 18733221 (Version 2)
Quarter: 2021Q1

REPORT INFORMATION
  Report Type: Spontaneous
  Country: US (occurrence: US)
  Receive Date: 20210112
  Receipt Date: 20210202
  Transmission Date: 20210419
  Serious: No
  Sender: FDA-Public Use
  Company Number: US-BLUEPRINT MEDICINES CORPORATION-SP-US-2021-000009

PATIENT
  Sex: Female

DRUGS (2)
  1. AYVAKIT [Suspect]
     Active Substance: AVAPRITINIB
     Indication: GASTROINTESTINAL STROMAL TUMOUR
     Route: 048
     Dates: start: 20201204
  2. AYVAKIT [Suspect]
     Active Substance: AVAPRITINIB

REACTIONS (8)
  - Wheezing [Unknown]
  - Eye discharge [Unknown]
  - Dyspnoea [Unknown]
  - Fluid retention [Unknown]
  - Oedema [Unknown]
  - Eye swelling [Unknown]
  - Swelling [Unknown]
  - Balance disorder [Unknown]
